FAERS Safety Report 12262337 (Version 1)
Quarter: 2016Q2

REPORT INFORMATION
  Report Type: Spontaneous
  Country: SA (occurrence: SA)
  Receive Date: 20160413
  Receipt Date: 20160413
  Transmission Date: 20160815
  Serious: Yes (Hospitalization)
  Sender: FDA-Public Use
  Company Number: SA-MYLANLABS-2016M1015271

PATIENT

DRUGS (5)
  1. DEXAMETHASONE. [Suspect]
     Active Substance: DEXAMETHASONE
     Indication: PRODUCT USED FOR UNKNOWN INDICATION
     Route: 064
  2. VANCOMYCIN [Suspect]
     Active Substance: VANCOMYCIN
     Indication: MIDDLE EAST RESPIRATORY SYNDROME
     Route: 064
  3. AZITHROMYCIN ANHYDROUS. [Suspect]
     Active Substance: AZITHROMYCIN ANHYDROUS
     Indication: MIDDLE EAST RESPIRATORY SYNDROME
     Route: 064
  4. IMIPENEM [Suspect]
     Active Substance: IMIPENEM
     Indication: MIDDLE EAST RESPIRATORY SYNDROME
     Route: 064
  5. OSELTAMIVIR [Suspect]
     Active Substance: OSELTAMIVIR
     Indication: MIDDLE EAST RESPIRATORY SYNDROME
     Route: 064

REACTIONS (3)
  - Foetal exposure during pregnancy [Recovered/Resolved]
  - Premature baby [Unknown]
  - Low birth weight baby [Unknown]
